FAERS Safety Report 19879870 (Version 1)
Quarter: 2021Q3

REPORT INFORMATION
  Report Type: Spontaneous
  Country: US (occurrence: US)
  Receive Date: 20210924
  Receipt Date: 20210924
  Transmission Date: 20211014
  Serious: Yes (Disabling)
  Sender: FDA-Public Use
  Company Number: US-TEVA-2021-US-1957598

PATIENT
  Age: 48 Year
  Sex: Female
  Weight: 63.5 kg

DRUGS (11)
  1. HERCEPTIN [Suspect]
     Active Substance: TRASTUZUMAB
     Indication: HER2 POSITIVE BREAST CANCER
     Dosage: EVERY 3 WEEKS
     Route: 042
     Dates: start: 20140724, end: 20140724
  2. NEULASTA [Concomitant]
     Active Substance: PEGFILGRASTIM
     Indication: HER2 POSITIVE BREAST CANCER
     Route: 058
     Dates: start: 20140725
  3. DOCETAXEL WINTHROP US [Suspect]
     Active Substance: DOCETAXEL
     Indication: HER2 POSITIVE BREAST CANCER
     Dosage: NUMBER OF CYCLE ? 06, FREQUENCY ? EVERY THREE WEEKS
     Route: 042
     Dates: start: 20140724, end: 20141106
  4. HERCEPTIN [Suspect]
     Active Substance: TRASTUZUMAB
     Dosage: EVERY 3 WEEKS
     Route: 042
     Dates: start: 20150416, end: 20150416
  5. NEULASTA [Concomitant]
     Active Substance: PEGFILGRASTIM
     Route: 058
     Dates: start: 20141017
  6. DOCETAXEL SAGENT [Suspect]
     Active Substance: DOCETAXEL
     Indication: HER2 POSITIVE BREAST CANCER
     Dosage: NUMBER OF CYCLE ? 06, FREQUENCY ? EVERY THREE WEEKS
     Route: 042
     Dates: start: 20140724, end: 20141106
  7. HERCEPTIN [Suspect]
     Active Substance: TRASTUZUMAB
     Dosage: EVERY 3 WEEKS
     Route: 042
     Dates: start: 20150323, end: 20150323
  8. PERJETA [Suspect]
     Active Substance: PERTUZUMAB
     Indication: HER2 POSITIVE BREAST CANCER
     Dosage: EVERY 3 WEEKS
     Route: 042
     Dates: start: 20140724
  9. DOCETAXEL SAGENT [Suspect]
     Active Substance: DOCETAXEL
     Dosage: NUMBER OF CYCLE ? 06, FREQUENCY ? EVERY THREE WEEKS
     Route: 042
     Dates: start: 20140724, end: 20141106
  10. CARBOPLATIN. [Suspect]
     Active Substance: CARBOPLATIN
     Indication: HER2 POSITIVE BREAST CANCER
     Dosage: NUMBER OF CYCLE ? 06, FREQUENCY ? EVERY THREE WEEKS
     Route: 042
     Dates: start: 20140724, end: 20141106
  11. HERCEPTIN [Suspect]
     Active Substance: TRASTUZUMAB
     Dosage: EVERY 3 WEEKS
     Route: 042
     Dates: start: 20150507, end: 20150507

REACTIONS (6)
  - Hair colour changes [Not Recovered/Not Resolved]
  - Left ventricular dilatation [Unknown]
  - Alopecia areata [Not Recovered/Not Resolved]
  - Madarosis [Not Recovered/Not Resolved]
  - Hair texture abnormal [Not Recovered/Not Resolved]
  - Ejection fraction decreased [Recovering/Resolving]

NARRATIVE: CASE EVENT DATE: 20140824
